FAERS Safety Report 6942891-6 (Version None)
Quarter: 2010Q3

REPORT INFORMATION
  Report Type: 
  Country: None (occurrence: None)
  Receive Date: 20100824
  Receipt Date: 20100824
  Transmission Date: 20110219
  Serious: Yes (Other)
  Sender: FDA-Public Use
  Company Number: None

PATIENT
  Sex: Female
  Weight: 53.5244 kg

DRUGS (1)
  1. MACROBID [Suspect]
     Indication: CYSTITIS
     Dosage: 100 MG 2X DAY
     Dates: start: 20100726

REACTIONS (3)
  - ASTHENIA [None]
  - FEELING COLD [None]
  - HYPERSOMNIA [None]
